FAERS Safety Report 5482330-8 (Version None)
Quarter: 2007Q4

REPORT INFORMATION
  Report Type: 
  Country: None (occurrence: None)
  Receive Date: 20071011
  Receipt Date: 20071005
  Transmission Date: 20080405
  Serious: Yes (Life-Threatening)
  Sender: FDA-Public Use
  Company Number: IT-AVENTIS-200719216GDDC

PATIENT
  Age: 70 Year
  Sex: Male

DRUGS (2)
  1. ARAVA [Suspect]
     Indication: RHEUMATOID ARTHRITIS
     Route: 048
     Dates: start: 20040101, end: 20071002
  2. ENALAPRIL MALEATE [Concomitant]
     Dosage: DOSE: UNK
     Route: 048

REACTIONS (4)
  - ASPARTATE AMINOTRANSFERASE INCREASED [None]
  - BLOOD URIC ACID INCREASED [None]
  - RENAL FAILURE [None]
  - RHABDOMYOLYSIS [None]
